FAERS Safety Report 12500345 (Version 2)
Quarter: 2016Q3

REPORT INFORMATION
  Report Type: Spontaneous
  Country: US (occurrence: US)
  Receive Date: 20160627
  Receipt Date: 20160726
  Transmission Date: 20161109
  Serious: No
  Sender: FDA-Public Use
  Company Number: US-PFIZER INC-2016301739

PATIENT
  Age: 51 Year
  Sex: Female

DRUGS (32)
  1. DEPAKOTE ER [Concomitant]
     Active Substance: DIVALPROEX SODIUM
     Dosage: 2 DF, 1X/DAY (NIGHT)
  2. DEXILANT DR [Concomitant]
     Dosage: 60 MG, 1X/DAY (MORNING)
  3. PAXIL HCL [Concomitant]
     Dosage: 40 MG, 1X/DAY (MORNING)
  4. PRAVACHOL [Concomitant]
     Active Substance: PRAVASTATIN SODIUM
     Dosage: 40 MG, 1X/DAY (NIGHT)
  5. ZESTRIL [Concomitant]
     Active Substance: LISINOPRIL
     Dosage: UNK, 1X/DAY (MORNING)
  6. WELLBUTRIN [Concomitant]
     Active Substance: BUPROPION HYDROCHLORIDE
     Dosage: 75 MG, 2X/DAY (MORN/NIGHT)
  7. ZYRTEC [Concomitant]
     Active Substance: CETIRIZINE HYDROCHLORIDE
     Dosage: 1 DF, 1X/DAY (MORNING)
  8. TOPAMAX [Concomitant]
     Active Substance: TOPIRAMATE
     Dosage: 50 MG, 2X/DAY (MORN/NIGHT)
  9. PROAIR HFA [Concomitant]
     Active Substance: ALBUTEROL SULFATE
     Dosage: UNK, AS NEEDED
  10. NITROSTAT [Concomitant]
     Active Substance: NITROGLYCERIN
     Dosage: 0.4 MG, AS NEEDED (AS DIRECTED)
  11. RANEXA [Concomitant]
     Active Substance: RANOLAZINE
     Dosage: 1000 MG, 2X/DAY (MORN/NIGHT)
  12. TOPAMAX [Concomitant]
     Active Substance: TOPIRAMATE
     Dosage: 200 MG, 2X/DAY (MORN/NIGHT)
  13. VITAMIN D2 [Concomitant]
     Active Substance: ERGOCALCIFEROL
     Dosage: 1.25 MG, MONTHLY ((50,000UNITS) 1 PER MONTH ON THE 3RD- MORNING)
  14. PLAQUENIL [Concomitant]
     Active Substance: HYDROXYCHLOROQUINE SULFATE
     Dosage: 200 MG, 2X/DAY (MORN/NIGHT)
  15. PERCOCET [Concomitant]
     Active Substance: ACETAMINOPHEN\OXYCODONE HYDROCHLORIDE
     Dosage: UNK, AS NEEDED (OXYCODONE HYDROCHLORIDE 7.5- ACETAMINOPHEN 325 ,EVERY 6 HOURS)
  16. NORVASC [Concomitant]
     Active Substance: AMLODIPINE BESYLATE
     Dosage: 25 MG, 1X/DAY (MORNING)
  17. COREG [Concomitant]
     Active Substance: CARVEDILOL
     Dosage: 3.125 MG, 2X/DAY (MORN-NIGHT)
  18. ZOFRAN [Concomitant]
     Active Substance: ONDANSETRON HYDROCHLORIDE
     Dosage: 8 MG, AS NEEDED (EVERY 6 HRS )
  19. ALCLOMETASONE DIPROPIONATE. [Concomitant]
     Active Substance: ALCLOMETASONE DIPROPIONATE
     Dosage: UNK, 2X/DAY (0.05% EX CREAM , MORN/NIGHT)
  20. TYLENOL PM [Concomitant]
     Active Substance: ACETAMINOPHEN\DIPHENHYDRAMINE
     Dosage: 1 DF, 1X/DAY (NIGHT)
  21. CARAFATE [Concomitant]
     Active Substance: SUCRALFATE
     Dosage: 1 G, 4X/DAY (4X A DAY-EVERY 6HRS)
  22. EFFIENT [Concomitant]
     Active Substance: PRASUGREL HYDROCHLORIDE
     Dosage: 10 MG, 1X/DAY (MORNING)
  23. SINEMET [Concomitant]
     Active Substance: CARBIDOPA\LEVODOPA
     Dosage: 1 DF, 2X/DAY (CARBIDOPA 25-LEVODOPA 100 )3PM-NIGHT
  24. ULTRAN [Concomitant]
     Active Substance: PHENAGLYCODOL
     Dosage: 1 DF, AS NEEDED (4X ADAY)
  25. METHOTREXATE. [Concomitant]
     Active Substance: METHOTREXATE
     Dosage: 15 MG, WEEKLY (2.5MG 6 TABS 1 DAY A WEEK (WED) MORNING)
  26. FOLIC ACID. [Concomitant]
     Active Substance: FOLIC ACID
     Dosage: 1 G, 1X/DAY (MORNING)
  27. CHANTIX [Suspect]
     Active Substance: VARENICLINE TARTRATE
     Indication: SMOKING CESSATION THERAPY
     Dosage: UNK, SINGLE
  28. ASPIRIN. [Concomitant]
     Active Substance: ASPIRIN
     Dosage: 81 MG, 1X/DAY (MORNING)
  29. BACLOFEN. [Concomitant]
     Active Substance: BACLOFEN
     Dosage: 20 MG, 3X/DAY (MORN-NOON-NIGHT)
  30. XANAX [Concomitant]
     Active Substance: ALPRAZOLAM
     Dosage: 0.25 MG, AS NEEDED (2X A DAY)
  31. CALCIUM + VITAMIN D3 [Concomitant]
     Active Substance: CALCIUM CARBONATE\CHOLECALCIFEROL
     Dosage: 1 DF, 1X/DAY (NIGHT)
  32. AMMONIUM LACTATE/POTASSIUM LACTATE/SODIUM LACTATE [Concomitant]
     Dosage: UNK, 2X/DAY (12% EX CREAM , MORN/NIGHT)

REACTIONS (2)
  - Malaise [Recovered/Resolved]
  - Vomiting [Recovered/Resolved]
